FAERS Safety Report 15780412 (Version 3)
Quarter: 2019Q4

REPORT INFORMATION
  Report Type: Report from Study
  Country: US (occurrence: US)
  Receive Date: 20190102
  Receipt Date: 20191223
  Transmission Date: 20200122
  Serious: No
  Sender: FDA-Public Use
  Company Number: PHEH2018US054697

PATIENT
  Sex: Female

DRUGS (1)
  1. ENTRESTO [Suspect]
     Active Substance: SACUBITRIL\VALSARTAN
     Indication: PRODUCT USED FOR UNKNOWN INDICATION
     Route: 048

REACTIONS (10)
  - Cough [Unknown]
  - Nasal congestion [Unknown]
  - Fatigue [Unknown]
  - Dyspnoea [Unknown]
  - Fluid retention [Unknown]
  - Gait inability [Unknown]
  - Ill-defined disorder [Unknown]
  - Wheezing [Unknown]
  - Nasopharyngitis [Unknown]
  - Weight increased [Unknown]
